FAERS Safety Report 16078651 (Version 6)
Quarter: 2019Q3

REPORT INFORMATION
  Report Type: Report from Study
  Country: US (occurrence: US)
  Receive Date: 20190315
  Receipt Date: 20190802
  Transmission Date: 20191004
  Serious: Yes (Hospitalization)
  Sender: FDA-Public Use
  Company Number: US-JNJFOC-20190307759

PATIENT
  Age: 66 Year
  Sex: Male

DRUGS (6)
  1. IMBRUVICA [Suspect]
     Active Substance: IBRUTINIB
     Indication: CHRONIC LYMPHOCYTIC LEUKAEMIA
     Dosage: 420 MG, QD
     Route: 048
     Dates: start: 20190206
  2. IMBRUVICA [Suspect]
     Active Substance: IBRUTINIB
     Dosage: 420 MG, QD
     Route: 048
     Dates: start: 20190306, end: 201903
  3. IMBRUVICA [Suspect]
     Active Substance: IBRUTINIB
     Route: 048
     Dates: start: 20190415
  4. IMBRUVICA [Suspect]
     Active Substance: IBRUTINIB
     Route: 048
     Dates: start: 20180516
  5. IMBRUVICA [Suspect]
     Active Substance: IBRUTINIB
     Route: 048
     Dates: start: 201805
  6. IMBRUVICA [Suspect]
     Active Substance: IBRUTINIB
     Indication: CHRONIC LYMPHOCYTIC LEUKAEMIA
     Dosage: 420 MG, QD
     Route: 048
     Dates: start: 20180614

REACTIONS (15)
  - Back disorder [Unknown]
  - Off label use [Unknown]
  - Paraesthesia [Unknown]
  - Vertigo [Unknown]
  - Hypersomnia [Unknown]
  - Blood potassium increased [Unknown]
  - Product use issue [Unknown]
  - Dizziness [Unknown]
  - Depression [Unknown]
  - White blood cell count increased [Not Recovered/Not Resolved]
  - Fall [Unknown]
  - Anaemia [Unknown]
  - Hypotension [Unknown]
  - Chest pain [Unknown]
  - Arthropathy [Unknown]

NARRATIVE: CASE EVENT DATE: 20180516
